FAERS Safety Report 5481209-5 (Version None)
Quarter: 2007Q4

REPORT INFORMATION
  Report Type: 
  Country: None (occurrence: None)
  Receive Date: 20071010
  Receipt Date: 20071001
  Transmission Date: 20080405
  Serious: Yes (Other)
  Sender: FDA-Public Use
  Company Number: PHEH2007US09851

PATIENT
  Age: 51 Year
  Sex: Female
  Weight: 53.061 kg

DRUGS (13)
  1. HORMONES [Concomitant]
     Indication: HORMONE REPLACEMENT THERAPY
     Dates: start: 19950101, end: 20030101
  2. ZOMETA [Suspect]
  3. AREDIA [Suspect]
     Indication: OSTEOPENIA
     Dosage: 90 MG MONTHLY
     Dates: start: 20030613, end: 20031002
  4. AREDIA [Suspect]
     Dosage: 60 MG EVERY 28 DAYS
     Dates: start: 20031028, end: 20051031
  5. PHENERGAN HCL [Concomitant]
     Dosage: UNK, PRN
  6. EPOGEN [Concomitant]
     Dosage: WEEKLY
  7. ZANTAC [Concomitant]
  8. DECADRON [Concomitant]
  9. PHOSLO [Concomitant]
  10. HECTOROL [Concomitant]
     Dosage: 5 TABS M-W-F
     Route: 048
  11. K-DUR 10 [Concomitant]
     Dosage: 20 MEQ, QD
     Route: 048
  12. LIPITOR [Concomitant]
     Dosage: 10 MG, QD
     Route: 048
  13. NIFEREX [Concomitant]

REACTIONS (9)
  - BIOPSY [None]
  - BREAST HYPERPLASIA [None]
  - BREAST MASS [None]
  - BREAST MICROCALCIFICATION [None]
  - BREAST NEOPLASM [None]
  - FIBROADENOMA OF BREAST [None]
  - OSTEOPENIA [None]
  - PAIN IN JAW [None]
  - TOOTHACHE [None]
